FAERS Safety Report 18456431 (Version 1)
Quarter: 2020Q4

REPORT INFORMATION
  Report Type: Report from Study
  Country: None (occurrence: US)
  Receive Date: 20201103
  Receipt Date: 20201103
  Transmission Date: 20210114
  Serious: Yes (Other)
  Sender: FDA-Public Use
  Company Number: US-ABBVIE-20K-163-3451831-00

PATIENT
  Age: 73 Year
  Sex: Male

DRUGS (1)
  1. HUMIRA [Suspect]
     Active Substance: ADALIMUMAB
     Indication: COLITIS ULCERATIVE
     Dosage: CITRATE FREE
     Route: 058

REACTIONS (8)
  - Excessive cerumen production [Unknown]
  - Vertigo [Unknown]
  - Fall [Unknown]
  - Tendon injury [Unknown]
  - Insomnia [Unknown]
  - Dizziness [Recovered/Resolved]
  - Arthralgia [Unknown]
  - Blood glucose fluctuation [Unknown]

NARRATIVE: CASE EVENT DATE: 201912
